FAERS Safety Report 9352926 (Version 1)
Quarter: 2013Q2

REPORT INFORMATION
  Report Type: Spontaneous
  Country: US (occurrence: None)
  Receive Date: 20130614
  Receipt Date: 20130614
  Transmission Date: 20140414
  Serious: Yes (Disabling)
  Sender: FDA-Public Use
  Company Number: None

PATIENT
  Age: 74 Year
  Sex: Female
  Weight: 68.04 kg

DRUGS (13)
  1. ALENDRONATE SODIUM [Suspect]
     Indication: OSTEOPENIA
     Route: 048
     Dates: start: 20130507, end: 20130521
  2. LEVOTHYROXIN [Concomitant]
  3. PRILOSEC [Concomitant]
  4. REQUIP [Concomitant]
  5. BACLOFEN [Concomitant]
  6. TRAMADOL [Concomitant]
  7. OXYCODONE [Concomitant]
  8. COUMADIN [Concomitant]
  9. CALCIUM CITRATE [Concomitant]
  10. VITAMIN D3 [Concomitant]
  11. CARBONYL IRON [Concomitant]
  12. STOOL SOFTENER [Concomitant]
  13. VITAMIN C [Concomitant]

REACTIONS (8)
  - Bone pain [None]
  - Pain in extremity [None]
  - Arthralgia [None]
  - Arthralgia [None]
  - Dysstasia [None]
  - Gait disturbance [None]
  - Musculoskeletal stiffness [None]
  - Tinnitus [None]
